FAERS Safety Report 14584569 (Version 1)
Quarter: 2018Q1

REPORT INFORMATION
  Report Type: Spontaneous
  Country: FR (occurrence: FR)
  Receive Date: 20180301
  Receipt Date: 20180301
  Transmission Date: 20180509
  Serious: Yes (Hospitalization)
  Sender: FDA-Public Use
  Company Number: FR-CONCORDIA PHARMACEUTICALS INC.-E2B_00010198

PATIENT
  Age: 78 Year
  Sex: Male
  Weight: 84 kg

DRUGS (8)
  1. DOLIPRANE [Suspect]
     Active Substance: ACETAMINOPHEN
     Indication: BRONCHITIS
     Route: 048
     Dates: start: 20171026, end: 20171104
  2. GELSEMIUM BOIRON [Concomitant]
     Route: 048
  3. AERIUS [Suspect]
     Active Substance: DESLORATADINE
     Indication: BRONCHITIS
     Route: 048
     Dates: start: 20171026, end: 20171104
  4. PREDNISOLONE. [Suspect]
     Active Substance: PREDNISOLONE
     Indication: BRONCHITIS
     Route: 048
     Dates: start: 20171026, end: 20171104
  5. PIVALONE [Suspect]
     Active Substance: TIXOCORTOL PIVALATE
     Indication: BRONCHITIS
     Route: 048
     Dates: start: 20171026, end: 20171104
  6. NOCTAMIDE [Concomitant]
     Active Substance: LORMETAZEPAM
     Route: 048
  7. BIOCALYPTOL /00094201/ [Suspect]
     Active Substance: PHOLCODINE
     Indication: BRONCHITIS
     Route: 048
     Dates: start: 20171026, end: 20171104
  8. CLARITHROMYCINE [Suspect]
     Active Substance: CLARITHROMYCIN
     Indication: BRONCHITIS
     Route: 048
     Dates: start: 20171026, end: 20171104

REACTIONS (1)
  - Drug reaction with eosinophilia and systemic symptoms [Recovered/Resolved]

NARRATIVE: CASE EVENT DATE: 20171104
